FAERS Safety Report 11542796 (Version 2)
Quarter: 2015Q3

REPORT INFORMATION
  Report Type: Spontaneous
  Country: US (occurrence: US)
  Receive Date: 20150923
  Receipt Date: 20150928
  Transmission Date: 20151125
  Serious: Yes (Hospitalization)
  Sender: FDA-Public Use
  Company Number: US-BAYER-2015-278160

PATIENT
  Age: 79 Year
  Sex: Male

DRUGS (15)
  1. PRILOSEC [Concomitant]
     Active Substance: OMEPRAZOLE MAGNESIUM
     Dosage: UNK
     Route: 065
     Dates: start: 20110127
  2. CLARITIN [Concomitant]
     Active Substance: LORATADINE
     Dosage: UNK
     Route: 065
  3. GABAPENTIN. [Concomitant]
     Active Substance: GABAPENTIN
     Dosage: UNK
     Route: 065
     Dates: start: 20080801
  4. AMIODARONE [Concomitant]
     Active Substance: AMIODARONE
     Indication: THROMBOSIS
     Dosage: UNK
     Route: 065
  5. XARELTO [Suspect]
     Active Substance: RIVAROXABAN
     Indication: ATRIAL FIBRILLATION
     Dosage: 20 MG, UNK
     Route: 048
     Dates: start: 20120305, end: 20130710
  6. XARELTO [Suspect]
     Active Substance: RIVAROXABAN
     Indication: THROMBOSIS PROPHYLAXIS
  7. ACETYLSALICYLIC ACID({=100 MG) [Suspect]
     Active Substance: ASPIRIN
     Indication: CARDIAC DISORDER
     Dosage: UNK
  8. LASIX [Concomitant]
     Active Substance: FUROSEMIDE
     Dosage: UNK
     Route: 065
     Dates: start: 20101224
  9. FLOMAX [Concomitant]
     Active Substance: TAMSULOSIN HYDROCHLORIDE
     Dosage: UNK
     Route: 065
     Dates: start: 20110509
  10. XARELTO [Suspect]
     Active Substance: RIVAROXABAN
     Indication: CEREBROVASCULAR ACCIDENT PROPHYLAXIS
  11. METOPROLOL [Concomitant]
     Active Substance: METOPROLOL
     Dosage: UNK
     Route: 065
     Dates: start: 20101224
  12. LEVOTHYROXINE. [Concomitant]
     Active Substance: LEVOTHYROXINE
     Dosage: UNK
     Route: 065
     Dates: start: 20110712
  13. LOVASTATIN. [Concomitant]
     Active Substance: LOVASTATIN
     Dosage: UNK
     Route: 065
  14. ALEVE [Suspect]
     Active Substance: NAPROXEN SODIUM
     Indication: PRODUCT USED FOR UNKNOWN INDICATION
     Dosage: UNK
     Route: 065
  15. ATORVASTATIN [Concomitant]
     Active Substance: ATORVASTATIN
     Dosage: UNK
     Route: 065
     Dates: start: 20120229

REACTIONS (1)
  - Upper gastrointestinal haemorrhage [Recovered/Resolved]

NARRATIVE: CASE EVENT DATE: 20130710
